FAERS Safety Report 6700658-8 (Version None)
Quarter: 2010Q2

REPORT INFORMATION
  Report Type: 
  Country: None (occurrence: None)
  Receive Date: 20100428
  Receipt Date: 20100417
  Transmission Date: 20101027
  Serious: Yes (Other)
  Sender: FDA-Public Use
  Company Number: PHHY2010MX24418

PATIENT
  Age: 76 Year
  Sex: Female

DRUGS (2)
  1. DIOVAN HCT [Suspect]
     Indication: HYPERTENSION
     Dosage: 2 TABLETS (160/25 MG) DAILY
     Route: 048
     Dates: start: 20081001
  2. ESCLEROVITAN ANTIO [Concomitant]
     Dosage: 2 TABLETS
     Dates: start: 20100401

REACTIONS (2)
  - BLOOD PRESSURE INCREASED [None]
  - DIZZINESS [None]
